FAERS Safety Report 25151435 (Version 4)
Quarter: 2025Q3

REPORT INFORMATION
  Report Type: Spontaneous
  Country: US (occurrence: US)
  Receive Date: 20250402
  Receipt Date: 20250815
  Transmission Date: 20251020
  Serious: Yes (Hospitalization)
  Sender: SAREPTA THERAPEUTICS
  Company Number: US-SAREPTA THERAPEUTICS INC.-SRP2025-005796

PATIENT
  Age: 15 Year
  Sex: Female
  Weight: 65.5 kg

DRUGS (6)
  1. ELEVIDYS [Suspect]
     Active Substance: DELANDISTROGENE MOXEPARVOVEC-ROKL
     Indication: Duchenne muscular dystrophy
     Route: 042
     Dates: start: 20241203, end: 20241203
  2. ATALUREN [Concomitant]
     Active Substance: ATALUREN
     Indication: Product used for unknown indication
     Dosage: 250 MILLIGRAM, TID
     Route: 048
  3. INSPRA [Concomitant]
     Active Substance: EPLERENONE
     Indication: Product used for unknown indication
     Dosage: 50 MILLIGRAM, QD
     Route: 048
     Dates: start: 20240923
  4. COZAAR [Concomitant]
     Active Substance: LOSARTAN POTASSIUM
     Indication: Product used for unknown indication
     Dosage: 50 MILLIGRAM, QD
     Route: 048
     Dates: start: 20241112
  5. AYGESTIN [Concomitant]
     Active Substance: NORETHINDRONE ACETATE
     Indication: Product used for unknown indication
     Dates: start: 20241108
  6. CHOLECALCIFEROL [Concomitant]
     Active Substance: CHOLECALCIFEROL
     Indication: Product used for unknown indication
     Route: 048

REACTIONS (13)
  - Rhabdomyolysis [Unknown]
  - Chromaturia [Unknown]
  - Muscle spasms [Unknown]
  - Myocarditis [Unknown]
  - Immune-mediated myositis [Unknown]
  - Abdominal pain [Unknown]
  - Dysuria [Unknown]
  - Tachycardia [Unknown]
  - Sleep disorder [Unknown]
  - Crying [Unknown]
  - Dysstasia [Unknown]
  - Aspartate aminotransferase increased [Unknown]
  - Alanine aminotransferase increased [Unknown]

NARRATIVE: CASE EVENT DATE: 20241201
